FAERS Safety Report 7943111-6 (Version None)
Quarter: 2011Q4

REPORT INFORMATION
  Report Type: 
  Country: None (occurrence: None)
  Receive Date: 20111128
  Receipt Date: 20111115
  Transmission Date: 20120403
  Serious: Yes (Hospitalization)
  Sender: FDA-Public Use
  Company Number: PHFR2010GB04614

PATIENT
  Sex: Male

DRUGS (3)
  1. CLOZARIL [Suspect]
     Indication: SCHIZOPHRENIA, PARANOID TYPE
     Route: 048
     Dates: start: 20091211, end: 20100922
  2. HALOPERIDOL [Concomitant]
     Dosage: 2 MG, DAILY
     Route: 048
  3. ZOPICLONE [Concomitant]
     Dosage: 7.5 MG, DAILY
     Route: 048

REACTIONS (1)
  - MENTAL DISORDER [None]
